FAERS Safety Report 5616120-X (Version None)
Quarter: 2008Q1

REPORT INFORMATION
  Report Type: 
  Country: None (occurrence: None)
  Receive Date: 20080206
  Receipt Date: 20080125
  Transmission Date: 20080703
  Serious: Yes (Hospitalization, Other)
  Sender: FDA-Public Use
  Company Number: DK-PFIZER INC-2008009118

PATIENT
  Sex: Female

DRUGS (3)
  1. CHANTIX [Suspect]
     Indication: SMOKING CESSATION THERAPY
     Route: 048
     Dates: start: 20071219, end: 20080112
  2. AMPICILLIN [Concomitant]
     Indication: SINUSITIS
  3. IMADRAX [Concomitant]

REACTIONS (4)
  - EYE OEDEMA [None]
  - HEADACHE [None]
  - OEDEMA PERIPHERAL [None]
  - WEIGHT INCREASED [None]
